FAERS Safety Report 13961360 (Version 1)
Quarter: 2017Q3

REPORT INFORMATION
  Report Type: Spontaneous
  Country: US (occurrence: None)
  Receive Date: 20170912
  Receipt Date: 20170912
  Transmission Date: 20171128
  Serious: Yes (Disabling)
  Sender: FDA-Public Use
  Company Number: None

PATIENT
  Age: 71 Year
  Sex: Female
  Weight: 104.33 kg

DRUGS (8)
  1. GADOLINIUM CONTRAST FOR MRI [Suspect]
     Active Substance: GADOLINIUM
     Indication: NUCLEAR MAGNETIC RESONANCE IMAGING BRAIN
     Dosage: FREQUENCY - 25 YEARS OF MRI^S EVERY YEAR?ROUTE - INJECTED
     Dates: start: 1993, end: 2016
  2. PROMETHAZINE [Concomitant]
     Active Substance: PROMETHAZINE\PROMETHAZINE HYDROCHLORIDE
  3. ASPRIN [Concomitant]
     Active Substance: ASPIRIN
  4. FUROSEMIDE. [Concomitant]
     Active Substance: FUROSEMIDE
  5. TOPROL XL [Concomitant]
     Active Substance: METOPROLOL SUCCINATE
  6. TRAMADOL. [Concomitant]
     Active Substance: TRAMADOL
  7. GADOLINIUM CONTRAST FOR MRI [Suspect]
     Active Substance: GADOLINIUM
     Indication: BRAIN NEOPLASM
     Dosage: FREQUENCY - 25 YEARS OF MRI^S EVERY YEAR?ROUTE - INJECTED
     Dates: start: 1993, end: 2016
  8. VITAMIN D [Concomitant]
     Active Substance: CHOLECALCIFEROL

REACTIONS (7)
  - Pain [None]
  - Asthenia [None]
  - Burning sensation [None]
  - Renal disorder [None]
  - Contrast media reaction [None]
  - Dizziness [None]
  - Amnesia [None]
